FAERS Safety Report 22111594 (Version 1)
Quarter: 2023Q1

REPORT INFORMATION
  Report Type: Spontaneous
  Country: US (occurrence: US)
  Receive Date: 20230318
  Receipt Date: 20230318
  Transmission Date: 20230417
  Serious: Yes (Hospitalization, Other)
  Sender: FDA-Public Use
  Company Number: US-ABBVIE-4339537

PATIENT
  Age: 71 Year
  Sex: Female

DRUGS (20)
  1. HUMIRA [Suspect]
     Active Substance: ADALIMUMAB
     Indication: Rheumatoid arthritis
     Dosage: STRENGTH-40 MG
     Route: 048
     Dates: start: 20191113, end: 20230201
  2. IBUPROFEN [Concomitant]
     Active Substance: IBUPROFEN
     Indication: Product used for unknown indication
  3. METOPROLOL [Concomitant]
     Active Substance: METOPROLOL
     Indication: Blood pressure management
  4. LEFLUNOMIDE [Concomitant]
     Active Substance: LEFLUNOMIDE
     Indication: Rheumatoid arthritis
     Dates: start: 201710
  5. BIOTIN [Concomitant]
     Active Substance: BIOTIN
     Indication: Prophylaxis
  6. ROSUVASTATIN [Concomitant]
     Active Substance: ROSUVASTATIN
     Indication: Hypocholesterolaemia
  7. ESCITALOPRAM [Concomitant]
     Active Substance: ESCITALOPRAM OXALATE
     Indication: Depression
  8. LISINOPRIL [Concomitant]
     Active Substance: LISINOPRIL
     Indication: Hypertension
  9. DIAZEPAM [Concomitant]
     Active Substance: DIAZEPAM
     Indication: Insomnia
  10. NORCO [Concomitant]
     Active Substance: ACETAMINOPHEN\HYDROCODONE BITARTRATE
     Indication: Product used for unknown indication
  11. NOVOLOG [Concomitant]
     Active Substance: INSULIN ASPART
     Indication: Type 2 diabetes mellitus
  12. FOLIC ACID [Concomitant]
     Active Substance: FOLIC ACID
     Indication: Product used for unknown indication
     Dates: start: 2017
  13. LIDOCAINE [Concomitant]
     Active Substance: LIDOCAINE
     Indication: Back pain
  14. PREDNISONE [Concomitant]
     Active Substance: PREDNISONE
     Indication: Rheumatoid arthritis
  15. LANTUS [Concomitant]
     Active Substance: INSULIN GLARGINE
     Indication: Type 2 diabetes mellitus
     Dates: end: 20230310
  16. FUROSEMIDE [Concomitant]
     Active Substance: FUROSEMIDE
     Indication: Fluid retention
  17. BYDUREON [Concomitant]
     Active Substance: EXENATIDE
     Indication: Type 2 diabetes mellitus
  18. GABAPENTIN [Concomitant]
     Active Substance: GABAPENTIN
     Indication: Back pain
  19. POTASSIUM CHLORIDE [Concomitant]
     Active Substance: POTASSIUM CHLORIDE
     Indication: Fluid retention
  20. OCUVITE [Concomitant]
     Active Substance: VITAMINS
     Indication: Product used for unknown indication

REACTIONS (30)
  - Acute kidney injury [Unknown]
  - Endocarditis [Unknown]
  - Mobility decreased [Unknown]
  - Sinus tachycardia [Unknown]
  - Immunosuppression [Unknown]
  - Rheumatoid arthritis [Unknown]
  - Cerebrovascular accident [Unknown]
  - Pain in extremity [Unknown]
  - Hypokalaemia [Unknown]
  - Asthenia [Unknown]
  - Confusional state [Unknown]
  - Limb deformity [Unknown]
  - Hyperlipidaemia [Unknown]
  - Encephalopathy [Unknown]
  - Septic cerebral embolism [Unknown]
  - Speech disorder [Unknown]
  - Nausea [Unknown]
  - Respiratory failure [Unknown]
  - Troponin increased [Unknown]
  - Metabolic encephalopathy [Unknown]
  - Somnolence [Unknown]
  - Vomiting [Unknown]
  - Facial paralysis [Unknown]
  - Type 2 diabetes mellitus [Unknown]
  - Hypoalbuminaemia [Unknown]
  - Hypomagnesaemia [Unknown]
  - Obesity [Unknown]
  - Diabetic neuropathy [Unknown]
  - Hypertension [Unknown]
  - Upper-airway cough syndrome [Unknown]

NARRATIVE: CASE EVENT DATE: 20230208
